FAERS Safety Report 4500244-4 (Version None)
Quarter: 2004Q4

REPORT INFORMATION
  Report Type: 
  Country: None (occurrence: None)
  Receive Date: 20041109
  Receipt Date: 20041025
  Transmission Date: 20050328
  Serious: Yes (Hospitalization)
  Sender: FDA-Public Use
  Company Number: 2004-BP-07808BP

PATIENT
  Age: 79 Year
  Sex: Male
  Weight: 88.9 kg

DRUGS (10)
  1. SPIRIVA [Suspect]
     Indication: CHRONIC OBSTRUCTIVE AIRWAYS DISEASE
     Dosage: 18 MCG (18 MCG), IH
     Route: 055
     Dates: start: 20040828, end: 20040903
  2. ATROVENT [Concomitant]
  3. FLAGYL [Concomitant]
  4. LEVOFLOXACIN [Concomitant]
  5. HEPARIN DRIP (HEPARIN) [Concomitant]
  6. MAALOX (MAALOX) [Concomitant]
  7. CHLORASEPTIC SPRAY (PHENOL) [Concomitant]
  8. AMIODARONE HCL [Concomitant]
  9. COMBIVENT [Concomitant]
  10. DIGOXIN [Concomitant]

REACTIONS (6)
  - ANGIONEUROTIC OEDEMA [None]
  - DYSPNOEA [None]
  - EYE SWELLING [None]
  - LARYNGEAL STENOSIS [None]
  - STRIDOR [None]
  - SWELLING FACE [None]
